FAERS Safety Report 8161839-2 (Version None)
Quarter: 2012Q1

REPORT INFORMATION
  Report Type: 
  Country: None (occurrence: None)
  Receive Date: 20120224
  Receipt Date: 20110719
  Transmission Date: 20120608
  Serious: No
  Sender: FDA-Public Use
  Company Number: US-BRISTOL-MYERS SQUIBB COMPANY-15899016

PATIENT
  Sex: Female

DRUGS (3)
  1. JANUVIA [Suspect]
  2. METFORMIN HCL [Suspect]
  3. ACTOS [Concomitant]

REACTIONS (2)
  - NAUSEA [None]
  - DIZZINESS [None]
